FAERS Safety Report 23627568 (Version 1)
Quarter: 2024Q1

REPORT INFORMATION
  Report Type: Spontaneous
  Country: ES (occurrence: ES)
  Receive Date: 20240313
  Receipt Date: 20240313
  Transmission Date: 20240410
  Serious: Yes (Hospitalization)
  Sender: FDA-Public Use
  Company Number: None

PATIENT
  Age: 95 Year
  Sex: Female

DRUGS (9)
  1. DOXYCYCLINE [Suspect]
     Active Substance: DOXYCYCLINE
     Indication: Impetigo
     Dosage: 100 MG DAILY
     Route: 048
  2. DOXYCYCLINE [Suspect]
     Active Substance: DOXYCYCLINE
     Indication: Off label use
  3. NYSTATIN [Suspect]
     Active Substance: NYSTATIN
     Indication: Dermatitis diaper
     Dosage: UNK
     Route: 065
  4. TRIAMCINOLONE [Suspect]
     Active Substance: TRIAMCINOLONE
     Indication: Dermatitis diaper
     Dosage: UNK
     Route: 065
  5. FUROSEMIDE [Concomitant]
     Active Substance: FUROSEMIDE
     Indication: Product used for unknown indication
     Dosage: 40 MG;AT BREAKFAST
     Route: 065
  6. LACTULOSE [Concomitant]
     Active Substance: LACTULOSE
     Indication: Product used for unknown indication
     Dosage: UNK
     Route: 065
  7. QUETIAPINE [Concomitant]
     Active Substance: QUETIAPINE
     Indication: Product used for unknown indication
     Dosage: 25 MG, QD (1/DAY)
     Route: 065
  8. MUPIROCIN [Interacting]
     Active Substance: MUPIROCIN
     Indication: Dermatitis diaper
     Dosage: UNK
     Route: 065
  9. NEOMYCIN [Interacting]
     Active Substance: NEOMYCIN
     Indication: Dermatitis diaper
     Dosage: UNK
     Route: 065

REACTIONS (5)
  - Condition aggravated [Recovering/Resolving]
  - Subcorneal pustular dermatosis [Recovering/Resolving]
  - Drug interaction [Unknown]
  - Product use in unapproved indication [Unknown]
  - Off label use [Unknown]
